FAERS Safety Report 5098878-4 (Version None)
Quarter: 2006Q3

REPORT INFORMATION
  Report Type: 
  Country: None (occurrence: None)
  Receive Date: 20060905
  Receipt Date: 20060814
  Transmission Date: 20061208
  Serious: Yes (Disabling)
  Sender: FDA-Public Use
  Company Number: 36204

PATIENT
  Age: 60 Year
  Sex: Female

DRUGS (4)
  1. NEVANAC [Suspect]
     Indication: DRY EYE
  2. NEVANAC [Suspect]
     Indication: EYE ALLERGY
  3. LOTEMAX [Suspect]
     Indication: DRY EYE
  4. LOTEMAX [Suspect]
     Indication: EYE ALLERGY

REACTIONS (3)
  - CATARACT [None]
  - CORNEAL SCAR [None]
  - ULCERATIVE KERATITIS [None]
